FAERS Safety Report 4385848-4 (Version None)
Quarter: 2004Q2

REPORT INFORMATION
  Report Type: 
  Country: None (occurrence: None)
  Receive Date: 20040628
  Receipt Date: 20040521
  Transmission Date: 20050107
  Serious: Yes (Hospitalization, Other)
  Sender: FDA-Public Use
  Company Number: CA-BRISTOL-MYERS SQUIBB COMPANY-12592572

PATIENT
  Age: 77 Year
  Sex: Male
  Weight: 37 kg

DRUGS (16)
  1. CAPTOPRIL [Suspect]
     Dates: start: 20040420
  2. ARANESP [Suspect]
     Indication: DIALYSIS
     Route: 058
     Dates: start: 20031111, end: 20040506
  3. CARBAMAZEPINE [Suspect]
     Dates: start: 20030617
  4. ASPIRIN [Concomitant]
     Dates: start: 20031204
  5. PANTOLOC [Concomitant]
     Dates: start: 20030916
  6. SEVELAMER HCL [Concomitant]
     Dates: start: 20030301
  7. TEMAZEPAM [Concomitant]
     Dates: start: 20020730
  8. DILTIAZEM HCL [Concomitant]
     Dates: start: 20040420
  9. CYANOCOBALAMIN [Concomitant]
     Dates: start: 20020730
  10. ALBUTEROL SULFATE [Concomitant]
     Dates: start: 20020224
  11. FLUTICASONE PROPIONATE [Concomitant]
     Dates: start: 20020730
  12. SALMETEROL [Concomitant]
     Dates: start: 20040420
  13. ACETAMINOPHEN [Concomitant]
     Dates: start: 20001022
  14. QUININE [Concomitant]
     Dates: start: 20020730
  15. MAGNESIUM SULFATE [Concomitant]
     Dates: start: 20000831
  16. RED BLOOD CELLS [Concomitant]
     Dates: start: 20020101

REACTIONS (3)
  - ANAEMIA [None]
  - BLOOD LACTATE DEHYDROGENASE INCREASED [None]
  - LUNG INFECTION [None]
